FAERS Safety Report 7804721-X (Version None)
Quarter: 2011Q4

REPORT INFORMATION
  Report Type: 
  Country: None (occurrence: None)
  Receive Date: 20111010
  Receipt Date: 20111003
  Transmission Date: 20120403
  Serious: Yes (Other)
  Sender: FDA-Public Use
  Company Number: US-AMGEN-USASP2011051066

PATIENT
  Age: 44 Year
  Sex: Female

DRUGS (2)
  1. ENBREL [Suspect]
     Indication: PSORIATIC ARTHROPATHY
     Dosage: 50 MG, QWK
     Dates: start: 20070301
  2. ENBREL [Suspect]
     Indication: PSORIASIS

REACTIONS (10)
  - DEPRESSION [None]
  - MALAISE [None]
  - TENDERNESS [None]
  - PSORIASIS [None]
  - SKIN INFECTION [None]
  - SWELLING [None]
  - INGROWN HAIR [None]
  - PSORIATIC ARTHROPATHY [None]
  - STRESS [None]
  - LYMPHADENOPATHY [None]
